FAERS Safety Report 5001707-8 (Version None)
Quarter: 2006Q2

REPORT INFORMATION
  Report Type: 
  Country: None (occurrence: None)
  Receive Date: 20060515
  Receipt Date: 20060502
  Transmission Date: 20061013
  Serious: Yes (Hospitalization)
  Sender: FDA-Public Use
  Company Number: PHEH2006US05720

PATIENT
  Age: 51 Year
  Sex: Male
  Weight: 84.353 kg

DRUGS (12)
  1. FAMVIR [Suspect]
     Indication: HERPES ZOSTER
     Route: 048
     Dates: start: 20060327, end: 20060330
  2. BACTRIM [Concomitant]
     Dates: start: 19870101
  3. ARICEPT [Concomitant]
     Dates: start: 19980601
  4. AVANDIA [Concomitant]
  5. FLUCONAZOLE [Concomitant]
  6. XANAX [Concomitant]
     Dates: start: 20040620
  7. NAMENDA [Concomitant]
     Dates: start: 20050101
  8. REMERON [Concomitant]
     Dates: start: 20050501
  9. NEURONTIN [Concomitant]
  10. ATAZANAVIR [Concomitant]
  11. NEVIRAPINE [Concomitant]
  12. LAMIVUDINE [Concomitant]

REACTIONS (1)
  - PYREXIA [None]
